FAERS Safety Report 20467743 (Version 2)
Quarter: 2022Q1

REPORT INFORMATION
  Report Type: Spontaneous
  Country: JP (occurrence: JP)
  Receive Date: 20220214
  Receipt Date: 20220222
  Transmission Date: 20220423
  Serious: Yes (Hospitalization, Other)
  Sender: FDA-Public Use
  Company Number: JP-SA-2022SA041276

PATIENT
  Age: 69 Year
  Sex: Female
  Weight: 37.5 kg

DRUGS (2)
  1. TAXOTERE [Suspect]
     Active Substance: DOCETAXEL
     Indication: Oesophageal squamous cell carcinoma recurrent
     Dosage: 60 MG/M2 (6 TIMES IN TOTAL)
     Route: 041
     Dates: start: 2015
  2. TAXOTERE [Suspect]
     Active Substance: DOCETAXEL
     Indication: Oesophageal squamous cell carcinoma stage III

REACTIONS (6)
  - Generalised oedema [Recovered/Resolved]
  - Oedema peripheral [Recovered/Resolved]
  - Ascites [Recovered/Resolved]
  - Pleural effusion [Recovered/Resolved]
  - Abnormal weight gain [Recovered/Resolved]
  - Febrile neutropenia [Unknown]

NARRATIVE: CASE EVENT DATE: 20150101
